FAERS Safety Report 16119075 (Version 1)
Quarter: 2019Q1

REPORT INFORMATION
  Report Type: Spontaneous
  Country: FR (occurrence: FR)
  Receive Date: 20190326
  Receipt Date: 20190326
  Transmission Date: 20190418
  Serious: Yes (Hospitalization, Other)
  Sender: FDA-Public Use
  Company Number: FR-SA-2019SA078035

PATIENT
  Age: 30 Year
  Sex: Female

DRUGS (2)
  1. CODEINE PHOSPHATE/PARACETAMOL [Suspect]
     Active Substance: ACETAMINOPHEN\CODEINE PHOSPHATE
     Dosage: 12 DF, QD
     Route: 048
  2. ZOLPIDEM TARTRATE. [Suspect]
     Active Substance: ZOLPIDEM TARTRATE
     Dosage: 280 MG, QD
     Route: 048

REACTIONS (4)
  - Overdose [Unknown]
  - Withdrawal syndrome [Recovering/Resolving]
  - Drug dependence [Unknown]
  - Drug detoxification [Recovering/Resolving]
